FAERS Safety Report 4598510-X (Version None)
Quarter: 2005Q1

REPORT INFORMATION
  Report Type: 
  Country: None (occurrence: None)
  Receive Date: 20050204
  Receipt Date: 20041102
  Transmission Date: 20050727
  Serious: Yes (Life-Threatening, Hospitalization)
  Sender: FDA-Public Use
  Company Number: PHEH2004US11069

PATIENT
  Age: 17 Year
  Sex: Female
  Weight: 73 kg

DRUGS (1)
  1. CLOZARIL [Suspect]
     Indication: SCHIZOAFFECTIVE DISORDER
     Dosage: 200 MG, QHS, ORAL
     Route: 048
     Dates: start: 20041006, end: 20041013

REACTIONS (4)
  - LEUKOPENIA [None]
  - MENTAL DISORDER [None]
  - NEUTROPENIA [None]
  - TACHYCARDIA [None]
